FAERS Safety Report 22365927 (Version 1)
Quarter: 2023Q2

REPORT INFORMATION
  Report Type: Spontaneous
  Country: US (occurrence: US)
  Receive Date: 20230525
  Receipt Date: 20230525
  Transmission Date: 20230721
  Serious: No
  Sender: FDA-Public Use
  Company Number: US-002147023-NVSC2023US115881

PATIENT
  Sex: Male

DRUGS (12)
  1. AZITHROMYCIN [Suspect]
     Active Substance: AZITHROMYCIN
     Indication: Mycobacterium avium complex infection
     Dosage: UNK
     Route: 065
  2. AZITHROMYCIN [Suspect]
     Active Substance: AZITHROMYCIN
     Indication: Bronchiectasis
     Dosage: UNK
     Route: 065
     Dates: start: 202301
  3. AZITHROMYCIN [Suspect]
     Active Substance: AZITHROMYCIN
     Indication: Respiratory failure
  4. AZITHROMYCIN [Suspect]
     Active Substance: AZITHROMYCIN
     Indication: Nausea
  5. AZITHROMYCIN [Suspect]
     Active Substance: AZITHROMYCIN
     Indication: Cough
  6. AZITHROMYCIN [Suspect]
     Active Substance: AZITHROMYCIN
     Indication: Immunosuppression
  7. RIFAMPIN [Suspect]
     Active Substance: RIFAMPIN
     Indication: Mycobacterium avium complex infection
     Dosage: UNK
     Route: 065
  8. RIFAMPIN [Suspect]
     Active Substance: RIFAMPIN
     Indication: Bronchiectasis
     Dosage: UNK
     Route: 065
     Dates: start: 202301
  9. RIFAMPIN [Suspect]
     Active Substance: RIFAMPIN
     Indication: Respiratory failure
  10. RIFAMPIN [Suspect]
     Active Substance: RIFAMPIN
     Indication: Nausea
  11. RIFAMPIN [Suspect]
     Active Substance: RIFAMPIN
     Indication: Cough
  12. RIFAMPIN [Suspect]
     Active Substance: RIFAMPIN
     Indication: Immunosuppression

REACTIONS (4)
  - Asthma [Recovering/Resolving]
  - Wheezing [Unknown]
  - Cough [Recovering/Resolving]
  - Dyspnoea [Unknown]
